FAERS Safety Report 9257389 (Version 1)
Quarter: 2013Q2

REPORT INFORMATION
  Report Type: Spontaneous
  Country: US (occurrence: US)
  Receive Date: 20130426
  Receipt Date: 20130426
  Transmission Date: 20140414
  Serious: No
  Sender: FDA-Public Use
  Company Number: US-PFIZER INC-2013125931

PATIENT
  Age: 53 Year
  Sex: Female

DRUGS (7)
  1. XELJANZ [Suspect]
     Indication: RHEUMATOID ARTHRITIS
     Dosage: 5 MG, 2X/DAY
     Route: 048
  2. JANUVIA [Concomitant]
     Dosage: 25 MG, UNK
  3. PROVENTIL [Concomitant]
     Dosage: 90 UG, UNK
  4. IBUPROFEN [Concomitant]
     Dosage: 200 MG, UNK
  5. ALBUTEROL [Concomitant]
     Dosage: 0.5 %, UNK
  6. METHYLPRED [Concomitant]
     Dosage: 4 MG, UNK
  7. ASPIRIN [Concomitant]
     Dosage: 81 MG, UNK

REACTIONS (1)
  - Headache [Unknown]
